FAERS Safety Report 5831422-X (Version None)
Quarter: 2008Q3

REPORT INFORMATION
  Report Type: 
  Country: None (occurrence: None)
  Receive Date: 20080801
  Receipt Date: 20080721
  Transmission Date: 20090109
  Serious: Yes (Hospitalization, Other)
  Sender: FDA-Public Use
  Company Number: US-PFIZER INC-2008046942

PATIENT
  Sex: Female
  Weight: 74.8 kg

DRUGS (2)
  1. DILANTIN SUSPENSION [Suspect]
     Indication: EPILEPSY
  2. DILANTIN [Suspect]
     Indication: EPILEPSY
     Route: 048

REACTIONS (6)
  - ANOREXIA [None]
  - ANTICONVULSANT DRUG LEVEL DECREASED [None]
  - DIZZINESS [None]
  - GRAND MAL CONVULSION [None]
  - MEDICATION ERROR [None]
  - TREMOR [None]
